FAERS Safety Report 9556431 (Version 2)
Quarter: 2013Q4

REPORT INFORMATION
  Report Type: Spontaneous
  Country: FI (occurrence: FI)
  Receive Date: 20130926
  Receipt Date: 20131021
  Transmission Date: 20140711
  Serious: Yes (Other)
  Sender: FDA-Public Use
  Company Number: FI-ROCHE-1277156

PATIENT
  Sex: Female

DRUGS (2)
  1. VESANOID [Suspect]
     Indication: PRODUCT USED FOR UNKNOWN INDICATION
     Route: 048
     Dates: start: 20130702, end: 20130805
  2. SUNITINIB [Suspect]
     Indication: ACUTE MYELOID LEUKAEMIA
     Route: 048
     Dates: start: 20130709, end: 20130805

REACTIONS (4)
  - Erythropoiesis abnormal [Not Recovered/Not Resolved]
  - Asthenia [Unknown]
  - Cardiac disorder [Unknown]
  - Angina pectoris [Unknown]
